FAERS Safety Report 16940835 (Version 3)
Quarter: 2019Q4

REPORT INFORMATION
  Report Type: Spontaneous
  Country: ES (occurrence: ES)
  Receive Date: 20191021
  Receipt Date: 20191213
  Transmission Date: 20200122
  Serious: Yes (Other)
  Sender: FDA-Public Use
  Company Number: ES-PFIZER INC-2019451478

PATIENT
  Age: 43 Year
  Sex: Male

DRUGS (7)
  1. ACFOL [Concomitant]
     Active Substance: FOLIC ACID
     Dosage: UNK
     Dates: start: 20181107, end: 20190909
  2. OMACOR [Concomitant]
     Active Substance: OMEGA-3-ACID ETHYL ESTERS
     Indication: HYPERCHOLESTEROLAEMIA
     Dosage: 1000 MG, DAILY
     Dates: end: 201708
  3. ZARATOR [Concomitant]
     Active Substance: ATORVASTATIN CALCIUM
     Indication: HYPERCHOLESTEROLAEMIA
     Dosage: 40 MG, DAILY
     Dates: end: 201708
  4. METHOTREXATE SODIUM. [Suspect]
     Active Substance: METHOTREXATE SODIUM
     Dosage: 7.5 MG, WEEKLY
     Route: 065
     Dates: start: 20181107, end: 20190909
  5. SECALIP [Concomitant]
     Active Substance: FENOFIBRATE
     Indication: HYPERCHOLESTEROLAEMIA
     Dosage: 200 MG, DAILY
     Dates: start: 201708
  6. OMEPRAZOLE. [Concomitant]
     Active Substance: OMEPRAZOLE
     Indication: GASTROOESOPHAGEAL REFLUX DISEASE
     Dosage: 20 MG, DAILY
  7. SKILARENCE [Suspect]
     Active Substance: DIMETHYL FUMARATE
     Dosage: PROGRESSIVE DOSES
     Dates: start: 20171204, end: 20180521

REACTIONS (3)
  - Acute myeloid leukaemia [Unknown]
  - Drug ineffective [Unknown]
  - Leukaemia [Unknown]
